FAERS Safety Report 23712325 (Version 1)
Quarter: 2024Q2

REPORT INFORMATION
  Report Type: Spontaneous
  Country: ZA (occurrence: ZA)
  Receive Date: 20240405
  Receipt Date: 20240405
  Transmission Date: 20240716
  Serious: Yes (Other)
  Sender: FDA-Public Use
  Company Number: ZA-BEH-2024170309

PATIENT
  Age: 6 Month
  Sex: Female

DRUGS (3)
  1. HUMAN IMMUNOGLOBULIN G [Suspect]
     Active Substance: HUMAN IMMUNOGLOBULIN G
     Indication: Combined immunodeficiency
     Route: 042
  2. BCG VACCINE [Concomitant]
     Active Substance: BCG VACCINE
     Route: 065
  3. POLIOMYELITIS VACCINE NOS [Concomitant]
     Active Substance: POLIOMYELITIS VACCINE
     Route: 065

REACTIONS (2)
  - Nephrotic syndrome [Unknown]
  - Vomiting [Unknown]
